FAERS Safety Report 7929118-3 (Version None)
Quarter: 2011Q4

REPORT INFORMATION
  Report Type: 
  Country: None (occurrence: None)
  Receive Date: 20111119
  Receipt Date: 20111114
  Transmission Date: 20120403
  Serious: Yes (Death)
  Sender: FDA-Public Use
  Company Number: US-ASTRAZENECA-2009UW19358

PATIENT
  Age: 78 Year
  Sex: Male

DRUGS (2)
  1. CASODEX [Suspect]
     Route: 048
  2. TOPROL-XL [Suspect]
     Route: 048

REACTIONS (2)
  - COLON CANCER [None]
  - DRUG INEFFECTIVE [None]
